FAERS Safety Report 10659367 (Version 1)
Quarter: 2014Q4

REPORT INFORMATION
  Report Type: Spontaneous
  Country: US (occurrence: None)
  Receive Date: 20141216
  Receipt Date: 20141216
  Transmission Date: 20150529
  Serious: No
  Sender: FDA-Public Use
  Company Number: None

PATIENT
  Age: 35 Year
  Sex: Female
  Weight: 111.13 kg

DRUGS (1)
  1. VALACYCLOVIR [Suspect]
     Active Substance: VALACYCLOVIR HYDROCHLORIDE
     Indication: HERPES SIMPLEX
     Dosage: 1 PILL
     Route: 048
     Dates: start: 20141208, end: 20141215

REACTIONS (4)
  - Rash generalised [None]
  - Insomnia [None]
  - Nausea [None]
  - Headache [None]

NARRATIVE: CASE EVENT DATE: 20141208
